FAERS Safety Report 5138105-2 (Version None)
Quarter: 2006Q4

REPORT INFORMATION
  Report Type: 
  Country: None (occurrence: None)
  Receive Date: 20061030
  Receipt Date: 20060417
  Transmission Date: 20070319
  Serious: No
  Sender: FDA-Public Use
  Company Number: US-GLAXOSMITHKLINE-A0601925A

PATIENT
  Age: 71 Year
  Sex: Male

DRUGS (3)
  1. ADVAIR HFA [Suspect]
     Indication: CHRONIC OBSTRUCTIVE PULMONARY DISEASE
     Route: 055
     Dates: start: 20001001
  2. VOLTAREN [Concomitant]
  3. CALCIUM GLUCONATE [Concomitant]

REACTIONS (1)
  - OSTEOPOROSIS [None]
